FAERS Safety Report 6062526-7 (Version None)
Quarter: 2009Q1

REPORT INFORMATION
  Report Type: 
  Country: None (occurrence: None)
  Receive Date: 20090203
  Receipt Date: 20090128
  Transmission Date: 20090719
  Serious: Yes (Other)
  Sender: FDA-Public Use
  Company Number: DE-JNJFOC-20081205766

PATIENT
  Age: 60 Year
  Sex: Male

DRUGS (7)
  1. IMODIUM [Suspect]
     Indication: DIARRHOEA
     Route: 048
  2. LOPERAMIDE HYDROCHLORIDE [Suspect]
     Indication: DIARRHOEA
  3. LOPERAMIDE HYDROCHLORIDE [Suspect]
  4. DIAZEPAM [Concomitant]
     Route: 065
  5. TILIDIN COMPOSITUM [Concomitant]
     Route: 065
  6. DICLOFENAC [Concomitant]
     Route: 065
  7. PARACETAMOL COMPOSITUM [Concomitant]
     Route: 065

REACTIONS (1)
  - DRUG DEPENDENCE [None]
